FAERS Safety Report 17203763 (Version 1)
Quarter: 2019Q4

REPORT INFORMATION
  Report Type: Spontaneous
  Country: CA (occurrence: CA)
  Receive Date: 20191226
  Receipt Date: 20191226
  Transmission Date: 20200122
  Serious: Yes (Disabling)
  Sender: FDA-Public Use
  Company Number: CA-TEVA-2019-CA-1156431

PATIENT
  Age: 37 Year
  Sex: Female
  Weight: 118 kg

DRUGS (1)
  1. PREGABALIN. [Suspect]
     Active Substance: PREGABALIN
     Indication: TRIGEMINAL NEURALGIA
     Dosage: 300 MILLIGRAM DAILY;
     Route: 048

REACTIONS (2)
  - Therapeutic response changed [Not Recovered/Not Resolved]
  - Pain [Not Recovered/Not Resolved]
